FAERS Safety Report 25044660 (Version 2)
Quarter: 2025Q4

REPORT INFORMATION
  Report Type: Spontaneous
  Country: EU (occurrence: EU)
  Receive Date: 20250306
  Receipt Date: 20251031
  Transmission Date: 20260117
  Serious: Yes (Disabling)
  Sender: ROCHE
  Company Number: None

PATIENT
  Age: 71 Year
  Sex: Male
  Weight: 62 kg

DRUGS (6)
  1. COLUMVI [Suspect]
     Active Substance: GLOFITAMAB-GXBM
     Indication: Diffuse large B-cell lymphoma
     Dosage: DAILY DOSE: 10 MG EVERY 00:00:01
     Route: 042
     Dates: start: 20241213
  2. COLUMVI [Suspect]
     Active Substance: GLOFITAMAB-GXBM
     Route: 065
     Dates: start: 20241206
  3. OBINUTUZUMAB [Suspect]
     Active Substance: OBINUTUZUMAB
     Indication: Chronic lymphocytic leukaemia
     Route: 065
     Dates: start: 20241129
  4. ACETAMINOPHEN [Concomitant]
     Active Substance: ACETAMINOPHEN
     Route: 048
     Dates: start: 20241213
  5. DEXAMETHASONE [Concomitant]
     Active Substance: DEXAMETHASONE
     Route: 042
     Dates: start: 20241213
  6. DIMETHINDENE [Concomitant]
     Active Substance: DIMETHINDENE
     Route: 042
     Dates: start: 20241213

REACTIONS (3)
  - VIth nerve paralysis [Unknown]
  - Diplopia [Unknown]
  - Visual impairment [Unknown]

NARRATIVE: CASE EVENT DATE: 20241213
